FAERS Safety Report 9602250 (Version 1)
Quarter: 2013Q4

REPORT INFORMATION
  Report Type: Spontaneous
  Country: CZ (occurrence: None)
  Receive Date: 20131003
  Receipt Date: 20131003
  Transmission Date: 20140711
  Serious: Yes (Other)
  Sender: FDA-Public Use
  Company Number: KAD201309-001264

PATIENT
  Sex: Male

DRUGS (1)
  1. AMPHOTERICIN B [Suspect]
     Indication: VISCERAL LEISHMANIASIS
     Dosage: LIPID COMPLEX

REACTIONS (2)
  - Febrile neutropenia [None]
  - Anaemia [None]
